FAERS Safety Report 19065968 (Version 1)
Quarter: 2021Q1

REPORT INFORMATION
  Report Type: Spontaneous
  Country: ES (occurrence: ES)
  Receive Date: 20210327
  Receipt Date: 20210327
  Transmission Date: 20210420
  Serious: Yes (Other)
  Sender: FDA-Public Use
  Company Number: ES-TEVA-2021-ES-1894509

PATIENT
  Age: 76 Year
  Sex: Male
  Weight: 77 kg

DRUGS (6)
  1. ADIRO 100 MG COMPRIMIDOS GASTRORRESISTENTES EFG [Concomitant]
     Active Substance: ASPIRIN
  2. CRESTOR 10 MG COMPRIMIDOS RECUBIERTOS CON PELICULA , 28 COMPRIMIDOS [Concomitant]
  3. METFORMINA 850 MG 50 COMPRIMIDOS [Suspect]
     Active Substance: METFORMIN HYDROCHLORIDE
     Indication: TYPE 2 DIABETES MELLITUS
     Dosage: 1700 MILLIGRAM DAILY; 1?0?1
     Route: 048
     Dates: start: 20200515, end: 20210225
  4. LEXATIN 1,5 MG CAPSULAS DURAS , 30 CAPSULAS [Concomitant]
  5. MICARDISPLUS 80 MG/12,5 MG COMPRIMIDOS 28 COMPRIMIDOS [Concomitant]
  6. AMLODIPINO 5 MG 28 COMPRIMIDOS [Concomitant]

REACTIONS (2)
  - Renal failure [Unknown]
  - Metabolic acidosis [Unknown]

NARRATIVE: CASE EVENT DATE: 20210226
